FAERS Safety Report 7132212-0 (Version None)
Quarter: 2010Q4

REPORT INFORMATION
  Report Type: 
  Country: None (occurrence: None)
  Receive Date: 20101202
  Receipt Date: 20101125
  Transmission Date: 20110411
  Serious: Yes (Life-Threatening, Hospitalization)
  Sender: FDA-Public Use
  Company Number: FR-BRISTOL-MYERS SQUIBB COMPANY-15407836

PATIENT
  Age: 69 Year
  Sex: Female

DRUGS (3)
  1. ABILIFY [Suspect]
     Route: 048
     Dates: start: 20100201, end: 20100908
  2. NEULEPTIL [Suspect]
     Dosage: FORMLN: NEULEPTIL 4%
     Route: 048
     Dates: start: 20080101, end: 20100909
  3. ALPRAZOLAM [Suspect]
     Route: 048
     Dates: start: 20080101

REACTIONS (5)
  - EJECTION FRACTION DECREASED [None]
  - RENAL FAILURE ACUTE [None]
  - RHABDOMYOLYSIS [None]
  - TACHYCARDIA [None]
  - TRANSAMINASES INCREASED [None]
